FAERS Safety Report 12764385 (Version 1)
Quarter: 2016Q3

REPORT INFORMATION
  Report Type: Spontaneous
  Country: US (occurrence: US)
  Receive Date: 20160920
  Receipt Date: 20160920
  Transmission Date: 20161109
  Serious: Yes (Other)
  Sender: FDA-Public Use
  Company Number: US-ELI_LILLY_AND_COMPANY-US201609003236

PATIENT
  Sex: Male

DRUGS (5)
  1. LANTUS [Concomitant]
     Active Substance: INSULIN GLARGINE
     Dosage: 10 U, EACH MORNING
     Route: 065
     Dates: start: 20160818
  2. LANTUS [Concomitant]
     Active Substance: INSULIN GLARGINE
     Dosage: 5 U, EACH EVENING
     Route: 065
     Dates: start: 20160818
  3. HUMALOG [Suspect]
     Active Substance: INSULIN LISPRO
     Indication: TYPE 2 DIABETES MELLITUS
     Dosage: UNK
     Route: 065
  4. HUMALOG [Suspect]
     Active Substance: INSULIN LISPRO
     Dosage: UNK
     Route: 065
  5. LANTUS [Concomitant]
     Active Substance: INSULIN GLARGINE
     Dosage: 10 U, EACH AFTERNOON
     Route: 065
     Dates: start: 20160818

REACTIONS (4)
  - Haemoglobin decreased [Unknown]
  - Incorrect dose administered [Unknown]
  - Mesothelioma [Unknown]
  - Blood glucose abnormal [Unknown]
